FAERS Safety Report 9962692 (Version 2)
Quarter: 2014Q1

REPORT INFORMATION
  Report Type: Report from Study
  Country: US (occurrence: US)
  Receive Date: 20140305
  Receipt Date: 20140305
  Transmission Date: 20141002
  Serious: No
  Sender: FDA-Public Use
  Company Number: US-ABBVIE-13P-163-1045762-00

PATIENT
  Age: 39 Year
  Sex: Female

DRUGS (11)
  1. HUMIRA [Suspect]
     Indication: CROHN^S DISEASE
     Route: 058
     Dates: start: 201212
  2. UNKNOWN MEDICATION [Concomitant]
     Indication: CROHN^S DISEASE
  3. QUESTRAN [Concomitant]
     Indication: DIARRHOEA
  4. ZOLOFT [Concomitant]
     Indication: DEPRESSION
  5. PENTASA [Concomitant]
     Indication: CROHN^S DISEASE
  6. LOMOTIL [Concomitant]
     Indication: DIARRHOEA
  7. MORPHINE SULFATE ER [Concomitant]
     Indication: ABDOMINAL PAIN
  8. ATIVAN [Concomitant]
     Indication: ANXIETY
  9. SEROQUEL [Concomitant]
     Indication: INSOMNIA
  10. SEROQUEL [Concomitant]
     Indication: MUSCLE SPASMS
  11. WELLBUTRIN XL [Concomitant]
     Indication: DEPRESSION

REACTIONS (13)
  - Fatigue [Unknown]
  - Injection site pain [Recovered/Resolved]
  - Injection site bruising [Unknown]
  - Incorrect product storage [Unknown]
  - Malaise [Unknown]
  - Crohn^s disease [Not Recovered/Not Resolved]
  - Nausea [Not Recovered/Not Resolved]
  - Catheter site oedema [Not Recovered/Not Resolved]
  - Catheter site pain [Not Recovered/Not Resolved]
  - Catheter site pain [Not Recovered/Not Resolved]
  - Catheter site bruise [Not Recovered/Not Resolved]
  - Pyrexia [Not Recovered/Not Resolved]
  - Chills [Not Recovered/Not Resolved]
